FAERS Safety Report 8855141 (Version 2)
Quarter: 2012Q4

REPORT INFORMATION
  Report Type: 
  Country: BR (occurrence: BR)
  Receive Date: 20121023
  Receipt Date: 20121206
  Transmission Date: 20130627
  Serious: Yes (Death, Hospitalization)
  Sender: FDA-Public Use
  Company Number: BR-PFIZER INC-2012201748

PATIENT
  Age: 29 Year
  Sex: Female
  Weight: 60 kg

DRUGS (3)
  1. SUTENT [Suspect]
     Indication: METASTATIC RENAL CELL CARCINOMA
     Dosage: 50 mg, 1x/day (cycle 4x2)
     Route: 048
     Dates: start: 20120808
  2. DIPIRONA [Concomitant]
     Dosage: 40 drops every 6 hours
  3. GALENIC /PARACETAMOL/CODEINE/ [Concomitant]
     Dosage: UNK

REACTIONS (3)
  - Anaemia [Fatal]
  - Oral pain [Unknown]
  - Fatigue [Unknown]
